FAERS Safety Report 23449832 (Version 1)
Quarter: 2024Q1

REPORT INFORMATION
  Report Type: Spontaneous
  Country: JP (occurrence: JP)
  Receive Date: 20240129
  Receipt Date: 20240129
  Transmission Date: 20240410
  Serious: Yes (Hospitalization)
  Sender: FDA-Public Use
  Company Number: JP-BAYER-2024A015211

PATIENT
  Age: 13 Year
  Sex: Male

DRUGS (1)
  1. RIVAROXABAN [Suspect]
     Active Substance: RIVAROXABAN
     Indication: Product used for unknown indication
     Route: 048

REACTIONS (4)
  - Hospitalisation [Unknown]
  - Product prescribing issue [Unknown]
  - Wrong technique in product usage process [Unknown]
  - Inappropriate schedule of product administration [Unknown]
